FAERS Safety Report 16626335 (Version 2)
Quarter: 2019Q3

REPORT INFORMATION
  Report Type: Spontaneous
  Country: IT (occurrence: IT)
  Receive Date: 20190724
  Receipt Date: 20190809
  Transmission Date: 20191004
  Serious: Yes (Death, Hospitalization)
  Sender: FDA-Public Use
  Company Number: IT-BIOGEN-2019BI00763915

PATIENT
  Age: 9 Month

DRUGS (2)
  1. SPINRAZA [Suspect]
     Active Substance: NUSINERSEN
     Indication: SPINAL MUSCULAR ATROPHY
     Route: 037
  2. SPINRAZA [Suspect]
     Active Substance: NUSINERSEN
     Dosage: FOURTH DOSE OF LOAD
     Route: 037
     Dates: start: 20190415

REACTIONS (3)
  - Respiratory tract infection [Fatal]
  - Cardio-respiratory arrest [Fatal]
  - Spinal muscular atrophy [Fatal]

NARRATIVE: CASE EVENT DATE: 20190604
